FAERS Safety Report 4340611-5 (Version None)
Quarter: 2004Q2

REPORT INFORMATION
  Report Type: 
  Country: None (occurrence: None)
  Receive Date: 20040413
  Receipt Date: 20040129
  Transmission Date: 20050107
  Serious: Yes (Hospitalization)
  Sender: FDA-Public Use
  Company Number: KII-2004-0009372

PATIENT
  Age: 13 Year
  Sex: Male
  Weight: 54.4 kg

DRUGS (2)
  1. MORPHINE SULFATE [Suspect]
     Indication: DRUG USE FOR UNKNOWN INDICATION
  2. METHYLPHENIDATE HCL [Concomitant]

REACTIONS (3)
  - MEDICATION ERROR [None]
  - POISONING [None]
  - SOMNOLENCE [None]
